FAERS Safety Report 8500231-5 (Version None)
Quarter: 2012Q3

REPORT INFORMATION
  Report Type: 
  Country: None (occurrence: None)
  Receive Date: 20120710
  Receipt Date: 20120702
  Transmission Date: 20120928
  Serious: Yes (Hospitalization, Other)
  Sender: FDA-Public Use
  Company Number: PHHY2012FR057704

PATIENT
  Sex: Male

DRUGS (21)
  1. DOXYCYCLINE [Concomitant]
     Indication: OSTEITIS
     Dosage: 200 MG PER DAY
     Dates: start: 20120308, end: 20120502
  2. NEBIVOLOL HCL [Concomitant]
  3. GABAPENTIN [Concomitant]
  4. FLUCONAZOLE [Concomitant]
     Dosage: 300 MG PER DAY
     Dates: start: 20120502
  5. AMLODIPINE [Concomitant]
  6. NOVOLOG MIX 70/30 [Concomitant]
  7. NEULASTA [Suspect]
     Dates: start: 20120308, end: 20120419
  8. VANCOMYCIN [Concomitant]
     Dosage: 2 G PER DAY
     Dates: start: 20120308, end: 20120502
  9. PLAVIX [Concomitant]
     Dates: end: 20120427
  10. ATORVASTATIN [Concomitant]
     Dates: end: 20120427
  11. LASIX [Concomitant]
  12. CARBOPLATIN [Suspect]
     Indication: NON-SMALL CELL LUNG CANCER
     Dosage: 328 MG ONCE EVERY 3 WEEKS
     Route: 042
     Dates: start: 20120308, end: 20120419
  13. PACLITAXEL [Suspect]
     Indication: NON-SMALL CELL LUNG CANCER
     Dosage: 240 MG ONCE EVERY 3 WEEKS
     Route: 042
     Dates: start: 20120308, end: 20120419
  14. PREVISCAN [Concomitant]
  15. FLUCONAZOLE [Concomitant]
     Dosage: 400 MG PER DAY
     Dates: start: 20120308, end: 20120427
  16. PANTOPRAZOLE [Concomitant]
  17. RAMIPRIL [Concomitant]
  18. TRAMADOL HCL [Concomitant]
     Dates: start: 20120223, end: 20120427
  19. ATARAX [Concomitant]
  20. ASPIRIN [Concomitant]
  21. ALDACTONE [Concomitant]

REACTIONS (4)
  - FEBRILE BONE MARROW APLASIA [None]
  - NEUROPATHY PERIPHERAL [None]
  - CYTOLYTIC HEPATITIS [None]
  - MUSCLE SPASMS [None]
